FAERS Safety Report 9670751 (Version 2)
Quarter: 2013Q4

REPORT INFORMATION
  Report Type: Spontaneous
  Country: US (occurrence: US)
  Receive Date: 20131106
  Receipt Date: 20131121
  Transmission Date: 20140711
  Serious: Yes (Life-Threatening)
  Sender: FDA-Public Use
  Company Number: US-DRREDDYS-USA/USA/13/0035336

PATIENT
  Age: 70 Year
  Sex: Female

DRUGS (3)
  1. FAMOTIDINE [Suspect]
     Indication: DYSPEPSIA
     Dosage: DAILY AT NIGHT
     Route: 065
  2. PRILOSEC [Suspect]
     Indication: PRODUCT USED FOR UNKNOWN INDICATION
     Dosage: DAILY IN THE MORNING
     Route: 065
  3. XANAX [Concomitant]
     Indication: PRODUCT USED FOR UNKNOWN INDICATION
     Route: 065

REACTIONS (3)
  - Choking [Unknown]
  - Abdominal pain upper [Unknown]
  - Dysphagia [Unknown]
